FAERS Safety Report 7958755-5 (Version None)
Quarter: 2011Q4

REPORT INFORMATION
  Report Type: 
  Country: None (occurrence: None)
  Receive Date: 20111206
  Receipt Date: 20111128
  Transmission Date: 20120403
  Serious: Yes (Hospitalization)
  Sender: FDA-Public Use
  Company Number: US-JNJFOC-20111110574

PATIENT
  Sex: Female
  Weight: 115.21 kg

DRUGS (17)
  1. DURAGESIC-100 [Suspect]
     Indication: FATIGUE
     Route: 062
     Dates: start: 20111109, end: 20111122
  2. DURAGESIC-100 [Suspect]
     Route: 062
     Dates: start: 20111122
  3. DURAGESIC-100 [Suspect]
     Indication: FIBROMYALGIA
     Route: 062
     Dates: start: 20110701, end: 20110801
  4. DURAGESIC-100 [Suspect]
     Route: 062
     Dates: start: 20110801, end: 20111109
  5. ACIPHEX [Concomitant]
     Indication: GASTROOESOPHAGEAL REFLUX DISEASE
     Route: 048
     Dates: start: 20060101
  6. DURAGESIC-100 [Suspect]
     Route: 062
     Dates: start: 20110701, end: 20110801
  7. DURAGESIC-100 [Suspect]
     Route: 062
     Dates: start: 20111122
  8. JANUMET [Concomitant]
     Indication: DIABETES MELLITUS
     Route: 065
     Dates: start: 20100101
  9. DURAGESIC-100 [Suspect]
     Route: 062
     Dates: start: 20110801, end: 20111109
  10. DURAGESIC-100 [Suspect]
     Route: 062
     Dates: start: 20111122
  11. DURAGESIC-100 [Suspect]
     Indication: BACK PAIN
     Route: 062
     Dates: start: 20110701, end: 20110801
  12. DURAGESIC-100 [Suspect]
     Route: 062
     Dates: start: 20110801, end: 20111109
  13. JANUMET [Concomitant]
     Route: 065
     Dates: start: 20111001
  14. DURAGESIC-100 [Suspect]
     Route: 062
     Dates: start: 20111109, end: 20111122
  15. DURAGESIC-100 [Suspect]
     Route: 062
     Dates: start: 20111109, end: 20111122
  16. BENICAR [Concomitant]
     Indication: BLOOD PRESSURE
     Route: 048
     Dates: start: 20110101
  17. ZOLPIDEM [Concomitant]
     Indication: SLEEP DISORDER THERAPY
     Route: 048
     Dates: start: 20060101

REACTIONS (5)
  - ADVERSE EVENT [None]
  - DRUG EFFECT DECREASED [None]
  - HOSPITALISATION [None]
  - DRUG INEFFECTIVE [None]
  - DRUG ADMINISTERED AT INAPPROPRIATE SITE [None]
